FAERS Safety Report 25392790 (Version 2)
Quarter: 2025Q3

REPORT INFORMATION
  Report Type: Report from Study
  Country: US (occurrence: US)
  Receive Date: 20250603
  Receipt Date: 20250919
  Transmission Date: 20251020
  Serious: Yes (Hospitalization)
  Sender: ABBVIE
  Company Number: US-ABBVIE-6221809

PATIENT
  Age: 78 Year
  Sex: Female

DRUGS (1)
  1. IMBRUVICA [Suspect]
     Active Substance: IBRUTINIB
     Indication: Chronic lymphocytic leukaemia recurrent
     Dosage: TAKE 2 CAPS BY MOUTH DAILY FOR 5 DAYS THEN 1 CAP DAILY FOR 2 DAYS
     Route: 048
     Dates: start: 202203

REACTIONS (3)
  - Seizure [Not Recovered/Not Resolved]
  - Oedema [Unknown]
  - Nervous system disorder [Unknown]
